FAERS Safety Report 13806058 (Version 1)
Quarter: 2017Q3

REPORT INFORMATION
  Report Type: Spontaneous
  Country: CN (occurrence: CN)
  Receive Date: 20170728
  Receipt Date: 20170728
  Transmission Date: 20171127
  Serious: Yes (Other)
  Sender: FDA-Public Use
  Company Number: CN-FRESENIUS KABI-FK201706458

PATIENT
  Age: 55 Year
  Sex: Male

DRUGS (4)
  1. IRINOTECAN (MANUFACTURER UNKNOWN) [Suspect]
     Active Substance: IRINOTECAN
     Indication: SMALL CELL LUNG CANCER
     Route: 065
  2. 6-CHLORO-N-BUTYL-PHTHALIDE [Suspect]
     Active Substance: INVESTIGATIONAL PRODUCT
     Indication: SMALL CELL LUNG CANCER
  3. TENIPOSIDE. [Suspect]
     Active Substance: TENIPOSIDE
     Indication: SMALL CELL LUNG CANCER
  4. CISPLATIN. [Suspect]
     Active Substance: CISPLATIN
     Indication: SMALL CELL LUNG CANCER

REACTIONS (3)
  - Off label use [Unknown]
  - Acute myeloid leukaemia [Unknown]
  - Medication error [Unknown]
